FAERS Safety Report 10088874 (Version 1)
Quarter: 2014Q2

REPORT INFORMATION
  Report Type: Spontaneous
  Country: US (occurrence: None)
  Receive Date: 20140418
  Receipt Date: 20140418
  Transmission Date: 20141212
  Serious: Yes (Death, Hospitalization)
  Sender: FDA-Public Use
  Company Number: None

PATIENT
  Age: 70 Year
  Sex: Male
  Weight: 74.84 kg

DRUGS (1)
  1. COUMADIN [Suspect]
     Indication: PULMONARY EMBOLISM
     Dosage: 1 PILL PER DAY
     Route: 048
     Dates: start: 20131229, end: 20140105

REACTIONS (10)
  - Malaise [None]
  - Adverse drug reaction [None]
  - Gastric haemorrhage [None]
  - Pericardial haemorrhage [None]
  - International normalised ratio increased [None]
  - Laboratory test abnormal [None]
  - Sepsis [None]
  - Infection [None]
  - Inflammation [None]
  - Therapeutic response increased [None]
